FAERS Safety Report 8166004-0 (Version None)
Quarter: 2012Q1

REPORT INFORMATION
  Report Type: 
  Country: None (occurrence: None)
  Receive Date: 20120227
  Receipt Date: 20110222
  Transmission Date: 20120608
  Serious: No
  Sender: FDA-Public Use
  Company Number: US-MYLANLABS-2011S1002237

PATIENT
  Age: 19 Year
  Sex: Female
  Weight: 56.7 kg

DRUGS (3)
  1. AMNESTEEM [Suspect]
     Indication: ACNE
     Dates: start: 20101228, end: 20110128
  2. AVIANE-28 [Concomitant]
  3. ADDERALL 5 [Concomitant]

REACTIONS (2)
  - MOOD ALTERED [None]
  - DEPRESSION [None]
